FAERS Safety Report 13323119 (Version 2)
Quarter: 2017Q1

REPORT INFORMATION
  Report Type: Report from Study
  Country: US (occurrence: US)
  Receive Date: 20170310
  Receipt Date: 20170324
  Transmission Date: 20170428
  Serious: Yes (Hospitalization)
  Sender: FDA-Public Use
  Company Number: US-BAYER-2017-038102

PATIENT
  Age: 57 Year
  Sex: Male

DRUGS (26)
  1. ZINC. [Concomitant]
     Active Substance: ZINC
  2. VITAMIN B6 [Concomitant]
     Active Substance: PYRIDOXINE HYDROCHLORIDE
  3. PRILOSEC [Concomitant]
     Active Substance: OMEPRAZOLE MAGNESIUM
  4. ASPIRIN. [Concomitant]
     Active Substance: ASPIRIN
  5. STIVARGA [Suspect]
     Active Substance: REGORAFENIB
     Indication: RECTAL CANCER
     Dosage: 120 MG, QD
     Route: 048
     Dates: start: 20170301, end: 201703
  6. VITAMIN D3 [Concomitant]
     Active Substance: CHOLECALCIFEROL
  7. CINNAMON. [Concomitant]
     Active Substance: CINNAMON
  8. VITAMIN B12 [Concomitant]
     Active Substance: CYANOCOBALAMIN
  9. AQUAPHOR ANTIBIOTIC [Concomitant]
  10. ANUSOL HC [Concomitant]
     Active Substance: HYDROCORTISONE
  11. VITAMIN C [Concomitant]
     Active Substance: ASCORBIC ACID
  12. MIRALAX [Concomitant]
     Active Substance: POLYETHYLENE GLYCOL 3350
  13. METFORMIN HCL [Concomitant]
     Active Substance: METFORMIN HYDROCHLORIDE
  14. LACTULOSE. [Concomitant]
     Active Substance: LACTULOSE
  15. FOLIC ACID. [Concomitant]
     Active Substance: FOLIC ACID
  16. ZOFRAN [Concomitant]
     Active Substance: ONDANSETRON HYDROCHLORIDE
  17. FISH OIL [Concomitant]
     Active Substance: FISH OIL
  18. STIVARGA [Suspect]
     Active Substance: REGORAFENIB
     Indication: RECTAL CANCER
     Dosage: DAILY DOSE 160 MG
     Route: 048
     Dates: start: 201703
  19. ACEPROMAZINE MALEATE [Concomitant]
     Active Substance: ACEPROMAZINE MALEATE
  20. PROCHLORPERAZINE MALEATE. [Concomitant]
     Active Substance: PROCHLORPERAZINE MALEATE
  21. MAGNESIUM OXIDE. [Concomitant]
     Active Substance: MAGNESIUM OXIDE
  22. FENOFIBRATE. [Concomitant]
     Active Substance: FENOFIBRATE
  23. STIVARGA [Suspect]
     Active Substance: REGORAFENIB
     Indication: RECTAL CANCER
     Dosage: 120 MG, QD
     Route: 048
     Dates: start: 20170222, end: 20170225
  24. NOVOLOG [Concomitant]
     Active Substance: INSULIN ASPART
  25. LANTUS [Concomitant]
     Active Substance: INSULIN GLARGINE
  26. KEFLEX [Concomitant]
     Active Substance: CEPHALEXIN

REACTIONS (10)
  - Dry skin [Not Recovered/Not Resolved]
  - Fatigue [None]
  - Constipation [Not Recovered/Not Resolved]
  - Abdominal pain upper [None]
  - Dyspepsia [None]
  - Asthenia [None]
  - Back pain [None]
  - Abdominal distension [None]
  - Pancreatitis [None]
  - Abdominal pain upper [None]

NARRATIVE: CASE EVENT DATE: 20170223
